FAERS Safety Report 4896063-X (Version None)
Quarter: 2005Q4

REPORT INFORMATION
  Report Type: 
  Country: None (occurrence: None)
  Receive Date: 20051220
  Receipt Date: 20050404
  Transmission Date: 20060501
  Serious: Yes (Life-Threatening, Hospitalization)
  Sender: FDA-Public Use
  Company Number: US124763

PATIENT
  Age: 36 Year
  Sex: Male
  Weight: 102.2 kg

DRUGS (1)
  1. ENBREL [Suspect]
     Indication: PSORIASIS
     Dosage: 50 MG, 2 IN 1 WEEKS, SC
     Route: 058
     Dates: start: 20050115, end: 20050316

REACTIONS (1)
  - APPENDICITIS [None]
